FAERS Safety Report 24850631 (Version 2)
Quarter: 2025Q1

REPORT INFORMATION
  Report Type: Report from Study
  Country: US (occurrence: US)
  Receive Date: 20250116
  Receipt Date: 20250221
  Transmission Date: 20250409
  Serious: Yes (Hospitalization, Other)
  Sender: MERCK SHARP & DOHME LLC
  Company Number: US-009507513-2412USA007910

PATIENT
  Age: 60 Year
  Sex: Female
  Weight: 72.109 kg

DRUGS (18)
  1. WINREVAIR [Suspect]
     Active Substance: SOTATERCEPT-CSRK
     Indication: Pulmonary arterial hypertension
     Dosage: DOSE DESCRIPTION : 0.4 MILLILITER, Q3W, STRENGTH: 60 MG
     Route: 058
     Dates: start: 202412
  2. WINREVAIR [Suspect]
     Active Substance: SOTATERCEPT-CSRK
  3. WINREVAIR [Suspect]
     Active Substance: SOTATERCEPT-CSRK
  4. WINREVAIR [Suspect]
     Active Substance: SOTATERCEPT-CSRK
  5. WINREVAIR [Suspect]
     Active Substance: SOTATERCEPT-CSRK
  6. WINREVAIR [Suspect]
     Active Substance: SOTATERCEPT-CSRK
  7. WINREVAIR [Suspect]
     Active Substance: SOTATERCEPT-CSRK
  8. WINREVAIR [Suspect]
     Active Substance: SOTATERCEPT-CSRK
  9. FUROSEMIDE [Concomitant]
     Active Substance: FUROSEMIDE
  10. TADALAFIL [Concomitant]
     Active Substance: TADALAFIL
  11. OPSUMIT [Concomitant]
     Active Substance: MACITENTAN
  12. AIRBORNE [Concomitant]
     Active Substance: HERBALS\MINERALS\VITAMINS
  13. ELIQUIS [Concomitant]
     Active Substance: APIXABAN
  14. CEPHALEXIN [Concomitant]
     Active Substance: CEPHALEXIN
  15. METOPROLOL SUCCINATE [Concomitant]
     Active Substance: METOPROLOL SUCCINATE
  16. OXYGEN [Concomitant]
     Active Substance: OXYGEN
  17. IPRATROPIUM BROMIDE [Concomitant]
     Active Substance: IPRATROPIUM BROMIDE
  18. POTASSIUM CHLORIDE [Concomitant]
     Active Substance: POTASSIUM CHLORIDE

REACTIONS (7)
  - Drug abuse [Unknown]
  - Respiratory syncytial virus infection [Unknown]
  - Skin laceration [Unknown]
  - Skin haemorrhage [Unknown]
  - Limb injury [Unknown]
  - Influenza [Unknown]
  - Oxygen therapy [Unknown]

NARRATIVE: CASE EVENT DATE: 20241201
